FAERS Safety Report 9270778 (Version 2)
Quarter: 2013Q2

REPORT INFORMATION
  Report Type: Other
  Country: SE (occurrence: SE)
  Receive Date: 20130503
  Receipt Date: 20130626
  Transmission Date: 20140414
  Serious: Yes (Other)
  Sender: FDA-Public Use
  Company Number: SE-WATSON-2013-07609

PATIENT
  Age: 72 Year
  Sex: Female

DRUGS (1)
  1. ALENAT [Suspect]
     Indication: OSTEOPOROSIS
     Dosage: 70 MG, 1/WEEK
     Route: 048
     Dates: start: 201201, end: 201303

REACTIONS (1)
  - Visual acuity reduced [Recovered/Resolved]
